FAERS Safety Report 24367291 (Version 5)
Quarter: 2024Q4

REPORT INFORMATION
  Report Type: Spontaneous
  Country: BE (occurrence: BE)
  Receive Date: 20240926
  Receipt Date: 20241217
  Transmission Date: 20250114
  Serious: No
  Sender: PFIZER
  Company Number: BE-PFIZER INC-PV202400122123

PATIENT

DRUGS (1)
  1. DEPO-PROVERA [Suspect]
     Active Substance: MEDROXYPROGESTERONE ACETATE
     Dosage: 150 MG

REACTIONS (1)
  - Device defective [Unknown]
